FAERS Safety Report 5144743-3 (Version None)
Quarter: 2006Q4

REPORT INFORMATION
  Report Type: 
  Country: None (occurrence: None)
  Receive Date: 20061107
  Receipt Date: 20061030
  Transmission Date: 20070319
  Serious: Yes (Other)
  Sender: FDA-Public Use
  Company Number: US-JNJFOC-20060506449

PATIENT
  Sex: Male
  Weight: 76.2 kg

DRUGS (4)
  1. REMICADE [Suspect]
     Indication: RHEUMATOID ARTHRITIS
     Route: 042
  2. SALSALATE [Concomitant]
  3. NEXIUM [Concomitant]
  4. SYNTHROID [Concomitant]

REACTIONS (6)
  - CHOLELITHIASIS [None]
  - CORONARY ARTERY DISEASE [None]
  - FRACTURE NONUNION [None]
  - HEPATIC ENZYME INCREASED [None]
  - HODGKIN'S DISEASE [None]
  - INTERSTITIAL LUNG DISEASE [None]
